FAERS Safety Report 14006244 (Version 2)
Quarter: 2018Q2

REPORT INFORMATION
  Report Type: Spontaneous
  Country: US (occurrence: US)
  Receive Date: 20170924
  Receipt Date: 20180507
  Transmission Date: 20180711
  Serious: No
  Sender: FDA-Public Use
  Company Number: US-ASTRAZENECA-2017SE95921

PATIENT
  Sex: Male

DRUGS (1)
  1. TUDORZA PRESSAIR [Suspect]
     Active Substance: ACLIDINIUM BROMIDE
     Dosage: 400UG, 1 INHALATION, TWO TIMES A DAY
     Route: 055

REACTIONS (3)
  - Wrong technique in device usage process [Unknown]
  - Asthma [Unknown]
  - Device malfunction [Unknown]
